FAERS Safety Report 9091569 (Version 1)
Quarter: 2013Q1

REPORT INFORMATION
  Report Type: Report from Study
  Country: US (occurrence: US)
  Receive Date: 20130218
  Receipt Date: 20130218
  Transmission Date: 20140127
  Serious: No
  Sender: FDA-Public Use
  Company Number: US-ABBOTT-12P-163-0906618-00

PATIENT
  Age: 31 Year
  Sex: Male
  Weight: 81.72 kg

DRUGS (6)
  1. SIMCOR 500MG/20MG [Suspect]
     Indication: LOW DENSITY LIPOPROTEIN INCREASED
     Dosage: 500/20 MG DAILY
     Dates: start: 20120217, end: 20120218
  2. SIMCOR 500MG/20MG [Suspect]
     Indication: HIGH DENSITY LIPOPROTEIN DECREASED
  3. LISINOPRIL [Concomitant]
     Indication: PRODUCT USED FOR UNKNOWN INDICATION
  4. XANAX [Concomitant]
     Indication: PRODUCT USED FOR UNKNOWN INDICATION
  5. OXYCODONE [Concomitant]
     Indication: PAIN
  6. ASPIRIN [Concomitant]
     Indication: HOT FLUSH
     Dosage: HALF TABLET 30 MINUTES PRIOR TO SIMCOR

REACTIONS (4)
  - Insomnia [Not Recovered/Not Resolved]
  - Nausea [Not Recovered/Not Resolved]
  - Dizziness [Not Recovered/Not Resolved]
  - Back pain [Not Recovered/Not Resolved]
